FAERS Safety Report 9471060 (Version 1)
Quarter: 2013Q3

REPORT INFORMATION
  Report Type: Spontaneous
  Country: DE (occurrence: None)
  Receive Date: 20130816
  Receipt Date: 20130816
  Transmission Date: 20140515
  Serious: Yes (Hospitalization)
  Sender: FDA-Public Use
  Company Number: 2013P1017804

PATIENT
  Age: 50 Year
  Sex: Male

DRUGS (1)
  1. TRANYLCYPROMINE [Suspect]

REACTIONS (14)
  - Intra-abdominal haematoma [None]
  - Thrombocytopenia [None]
  - Drug dependence [None]
  - Delirium [None]
  - Withdrawal syndrome [None]
  - Blood lactate dehydrogenase increased [None]
  - Vascular encephalopathy [None]
  - Self-medication [None]
  - Incorrect dose administered [None]
  - Disorientation [None]
  - Incoherent [None]
  - Agitation [None]
  - Depressed level of consciousness [None]
  - Suggestibility [None]
